FAERS Safety Report 18904751 (Version 1)
Quarter: 2021Q1

REPORT INFORMATION
  Report Type: Spontaneous
  Country: IT (occurrence: IT)
  Receive Date: 20210217
  Receipt Date: 20210217
  Transmission Date: 20210420
  Serious: Yes (Hospitalization)
  Sender: FDA-Public Use
  Company Number: IT-PFIZER INC-2021129165

PATIENT
  Age: 17 Year
  Sex: Male

DRUGS (1)
  1. GABAPENTIN. [Suspect]
     Active Substance: GABAPENTIN
     Dosage: 800 MG, TOTAL
     Route: 048
     Dates: start: 20210131, end: 20210131

REACTIONS (4)
  - Intentional overdose [Recovering/Resolving]
  - Drug abuse [Recovering/Resolving]
  - Somnolence [Recovering/Resolving]
  - Depressed level of consciousness [Recovering/Resolving]

NARRATIVE: CASE EVENT DATE: 20210131
